FAERS Safety Report 9871076 (Version 2)
Quarter: 2014Q1

REPORT INFORMATION
  Report Type: Spontaneous
  Country: FR (occurrence: FR)
  Receive Date: 20140205
  Receipt Date: 20140211
  Transmission Date: 20141002
  Serious: Yes (Hospitalization)
  Sender: FDA-Public Use
  Company Number: PHHY2014FR011308

PATIENT
  Age: 61 Year
  Sex: Male

DRUGS (1)
  1. ATENOLOL SANDOZ [Suspect]
     Indication: PRODUCT USED FOR UNKNOWN INDICATION
     Route: 048
     Dates: start: 20070615, end: 20070615

REACTIONS (3)
  - Loss of consciousness [Unknown]
  - Fracture [Unknown]
  - Malaise [Recovered/Resolved with Sequelae]
